FAERS Safety Report 9395144 (Version 6)
Quarter: 2014Q2

REPORT INFORMATION
  Report Type: Report from Study
  Country: GB (occurrence: GB)
  Receive Date: 20130711
  Receipt Date: 20140513
  Transmission Date: 20141212
  Serious: Yes (Hospitalization)
  Sender: FDA-Public Use
  Company Number: GB-ROCHE-1242793

PATIENT
  Sex: 0

DRUGS (50)
  1. PERTUZUMAB [Suspect]
     Indication: HER-2 POSITIVE BREAST CANCER
     Route: 042
     Dates: start: 20130516
  2. PERTUZUMAB [Suspect]
     Dosage: MOST RECENT DOSE PRIOR TO SAE: 06/JUN/2013. TEMPORARILY INTERRUPTED DUE TO SAE.
     Route: 042
     Dates: end: 20130627
  3. PERTUZUMAB [Suspect]
     Route: 042
     Dates: start: 20130718
  4. PERTUZUMAB [Suspect]
     Dosage: LAST DOSE PRIOR TO SAE OF HYPOTENSIVE ON 01/AUG/2013
     Route: 042
     Dates: start: 20130516
  5. TRASTUZUMAB [Suspect]
     Indication: HER-2 POSITIVE BREAST CANCER
     Route: 042
     Dates: start: 20130516
  6. TRASTUZUMAB [Suspect]
     Dosage: DOSE: 6MG/KG AS PER PROTOCOL. MOST RECENT DOSE PRIOR TO SAE: 06/JUN/2013. TEMPORARILY INTERRUPTED DU
     Route: 042
     Dates: end: 20130627
  7. TRASTUZUMAB [Suspect]
     Route: 042
     Dates: start: 20130718
  8. PACLITAXEL [Suspect]
     Indication: HER-2 POSITIVE BREAST CANCER
     Dosage: MOST RECENT DOSE PRIOR TO SAE: 06/JUN/2013. TEMPORARILY INTERRUPTED DUE TO SAE.
     Route: 042
     Dates: start: 20130516, end: 20130627
  9. PACLITAXEL [Suspect]
     Route: 042
     Dates: start: 20130711
  10. OXYCODONE HYDROCHLORIDE [Concomitant]
     Dosage: 5 MG/ML. 10 MG AS REUIRED
     Route: 065
     Dates: start: 20131120
  11. OXYCODONE HYDROCHLORIDE [Concomitant]
     Route: 065
     Dates: start: 20131120
  12. THYROXINE [Concomitant]
     Route: 065
     Dates: start: 200110
  13. DICLOFENAC [Concomitant]
     Route: 065
     Dates: start: 201301
  14. MORPHINE SULFATE [Concomitant]
     Route: 065
     Dates: start: 201304, end: 20130710
  15. MORPHINE SULFATE [Concomitant]
     Route: 065
     Dates: start: 20130808
  16. LYRICA [Concomitant]
     Route: 065
     Dates: start: 201304
  17. PARACETAMOL [Concomitant]
     Route: 065
     Dates: start: 201303
  18. SEVREDOL [Concomitant]
     Route: 065
     Dates: start: 201304
  19. SEVREDOL [Concomitant]
     Route: 065
     Dates: start: 20130711
  20. SEVREDOL [Concomitant]
     Dosage: 15 MG AS REQUIRED
     Route: 065
     Dates: start: 20131009
  21. RANITIDINE [Concomitant]
     Route: 065
     Dates: start: 20130523
  22. METOCLOPRAMIDE [Concomitant]
     Route: 065
     Dates: start: 20130516
  23. METOCLOPRAMIDE [Concomitant]
     Route: 065
     Dates: start: 20130801
  24. METOCLOPRAMIDE [Concomitant]
     Route: 065
     Dates: start: 20130725
  25. FUROSEMIDE [Concomitant]
     Route: 065
     Dates: start: 20130613, end: 20130618
  26. FUROSEMIDE [Concomitant]
     Route: 065
     Dates: start: 20130524, end: 20130528
  27. FUROSEMIDE [Concomitant]
     Route: 065
     Dates: start: 20130711
  28. FUROSEMIDE [Concomitant]
     Route: 065
     Dates: start: 20130801, end: 20130808
  29. FUROSEMIDE [Concomitant]
     Route: 065
     Dates: start: 20130808, end: 20130815
  30. FUROSEMIDE [Concomitant]
     Route: 065
     Dates: start: 20130815, end: 20130904
  31. FUROSEMIDE [Concomitant]
     Route: 065
     Dates: start: 20130904, end: 20131024
  32. FUROSEMIDE [Concomitant]
     Route: 065
     Dates: start: 20131024
  33. GELCLAIR (UNITED KINGDOM) [Concomitant]
     Route: 065
     Dates: start: 20130619
  34. DEXAMETHASONE [Concomitant]
     Route: 065
     Dates: start: 20130505
  35. DEXAMETHASONE [Concomitant]
     Route: 065
     Dates: start: 20130505, end: 20130510
  36. DEXAMETHASONE [Concomitant]
     Route: 065
     Dates: start: 20130511, end: 20130517
  37. DEXAMETHASONE [Concomitant]
     Route: 065
     Dates: start: 20130520, end: 20130521
  38. DEXAMETHASONE [Concomitant]
     Route: 065
     Dates: start: 20130521, end: 20130524
  39. DEXAMETHASONE [Concomitant]
     Route: 065
     Dates: start: 20130525, end: 20130612
  40. DEXAMETHASONE [Concomitant]
     Route: 065
     Dates: start: 20130401, end: 20130505
  41. DEXAMETHASONE [Concomitant]
     Route: 065
     Dates: start: 20130516
  42. HYDROCORTISONE [Concomitant]
     Route: 065
     Dates: start: 20130516
  43. CHLORPHENAMINE [Concomitant]
     Route: 065
     Dates: start: 20130516
  44. IMODIUM [Concomitant]
     Route: 065
     Dates: start: 20130729
  45. OMEPRAZOLE [Concomitant]
     Route: 065
     Dates: start: 20130712
  46. AMOXICILLIN [Concomitant]
     Route: 065
     Dates: start: 20131212, end: 20131218
  47. AMOXICILLIN [Concomitant]
     Route: 065
     Dates: start: 20140127, end: 20140203
  48. BISACODYL [Concomitant]
     Route: 065
     Dates: start: 20131128
  49. GENTAMYCIN [Concomitant]
     Route: 065
     Dates: start: 20140311, end: 20140312
  50. OSELTAMIVIR [Concomitant]
     Route: 065
     Dates: start: 20140312, end: 20140318

REACTIONS (3)
  - Blister [Recovered/Resolved]
  - Infection [Not Recovered/Not Resolved]
  - Cellulitis [Recovered/Resolved]
